FAERS Safety Report 5287412-1 (Version None)
Quarter: 2007Q1

REPORT INFORMATION
  Report Type: 
  Country: None (occurrence: None)
  Receive Date: 20070116
  Receipt Date: 20060926
  Transmission Date: 20070707
  Serious: No
  Sender: FDA-Public Use
  Company Number: 2006SP003426

PATIENT
  Age: 57 Year
  Sex: Female
  Weight: 79.3795 kg

DRUGS (4)
  1. LUNESTA [Suspect]
     Indication: INSOMNIA
     Dosage: 2 MG; ORAL
     Route: 048
     Dates: start: 20060924, end: 20060926
  2. ADVAIR DISKUS 100/50 [Concomitant]
  3. SINGULAIR [Concomitant]
  4. FLONASE [Concomitant]

REACTIONS (3)
  - ANXIETY [None]
  - DIZZINESS [None]
  - PARADOXICAL DRUG REACTION [None]
